FAERS Safety Report 5828425-8 (Version None)
Quarter: 2008Q3

REPORT INFORMATION
  Report Type: 
  Country: None (occurrence: None)
  Receive Date: 20080729
  Receipt Date: 20080725
  Transmission Date: 20090109
  Serious: Yes (Life-Threatening)
  Sender: FDA-Public Use
  Company Number: SP01833

PATIENT
  Age: 86 Year
  Sex: Female

DRUGS (4)
  1. VISICOL [Suspect]
     Indication: ENDOSCOPY LARGE BOWEL
     Dosage: 40 GM, ORAL
     Route: 048
     Dates: start: 20080227, end: 20080227
  2. SENNOSIDE [Concomitant]
  3. FLUNITRAZEPAM [Concomitant]
  4. BROTIZOLAM [Concomitant]

REACTIONS (12)
  - ARRHYTHMIA [None]
  - CLONIC CONVULSION [None]
  - COLD SWEAT [None]
  - DEHYDRATION [None]
  - ELECTROCARDIOGRAM QT PROLONGED [None]
  - FAECAL VOLUME INCREASED [None]
  - LOSS OF CONSCIOUSNESS [None]
  - MALAISE [None]
  - NAUSEA [None]
  - PULSE ABSENT [None]
  - SHOCK [None]
  - VOMITING [None]
